FAERS Safety Report 24389999 (Version 1)
Quarter: 2024Q4

REPORT INFORMATION
  Report Type: Report from Study
  Country: US (occurrence: US)
  Receive Date: 20241003
  Receipt Date: 20241003
  Transmission Date: 20250115
  Serious: Yes (Other)
  Sender: UCB
  Company Number: US-UCBSA-2024007498

PATIENT
  Age: 8 Year
  Sex: Female
  Weight: 31.8 kg

DRUGS (13)
  1. FINTEPLA [Suspect]
     Active Substance: FENFLURAMINE
     Indication: Severe myoclonic epilepsy of infancy
     Dosage: UNK
     Dates: start: 202007
  2. FINTEPLA [Suspect]
     Active Substance: FENFLURAMINE
     Dosage: 4 ML AM AND 5 ML PM
     Dates: start: 20200828
  3. FINTEPLA [Suspect]
     Active Substance: FENFLURAMINE
     Dosage: 2.7 MILLILITER, 2X/DAY (BID)
     Route: 048
  4. NAYZILAM [Suspect]
     Active Substance: MIDAZOLAM
     Indication: Product used for unknown indication
     Dosage: 5 MILLIGRAM
     Route: 045
  5. DEPAKOTE [Concomitant]
     Active Substance: DIVALPROEX SODIUM
     Indication: Product used for unknown indication
     Dosage: 375 MILLIGRAM, 3X/DAY (TID)
  6. DIASTAT [Concomitant]
     Active Substance: DIAZEPAM
     Indication: Seizure
     Dosage: 2ML AM, 3ML PM
     Route: 048
  7. ONFI [Concomitant]
     Active Substance: CLOBAZAM
     Indication: Product used for unknown indication
     Dosage: 10 MILLIGRAM, ONCE DAILY (QD)
     Route: 048
     Dates: start: 202402
  8. DIACOMIT [Concomitant]
     Active Substance: STIRIPENTOL
     Indication: Product used for unknown indication
     Dosage: 1 CAPSULE IN AM, 2 CAPSULES IN PM
     Route: 048
  9. LEVOCARNITINE [Concomitant]
     Active Substance: LEVOCARNITINE
     Indication: Product used for unknown indication
     Dosage: 2.5 MILLILITER, 2X/DAY (BID)
     Route: 048
  10. DIVALPROEX SODIUM [Concomitant]
     Active Substance: DIVALPROEX SODIUM
     Indication: Product used for unknown indication
     Dosage: 125 MILLIGRAM, 3X/DAY (TID)
  11. PREDNISONE [Concomitant]
     Active Substance: PREDNISONE
     Indication: Product used for unknown indication
     Dosage: UNK
     Dates: start: 201502
  12. VITAMINS [Concomitant]
     Active Substance: VITAMINS
     Indication: Product used for unknown indication
     Dosage: UNK
  13. VALIUM [Concomitant]
     Active Substance: DIAZEPAM
     Indication: Seizure

REACTIONS (10)
  - Seizure [Not Recovered/Not Resolved]
  - Rhinorrhoea [Not Recovered/Not Resolved]
  - Lacrimation increased [Not Recovered/Not Resolved]
  - Pyrexia [Not Recovered/Not Resolved]
  - Weight increased [Unknown]
  - Fatigue [Recovered/Resolved]
  - Gait disturbance [Unknown]
  - Compression fracture [Unknown]
  - Electroencephalogram abnormal [Unknown]
  - Product use issue [Unknown]

NARRATIVE: CASE EVENT DATE: 20200827
